FAERS Safety Report 8333154-5 (Version None)
Quarter: 2012Q2

REPORT INFORMATION
  Report Type: 
  Country: None (occurrence: None)
  Receive Date: 20120503
  Receipt Date: 20120424
  Transmission Date: 20120825
  Serious: Yes (Death)
  Sender: FDA-Public Use
  Company Number: GB-PFIZER INC-2012101954

PATIENT
  Age: 50 Year
  Sex: Female

DRUGS (2)
  1. TYGACIL [Suspect]
     Indication: ENDOCARDITIS ENTEROCOCCAL
  2. TYGACIL [Suspect]
     Indication: ABDOMINAL INFECTION

REACTIONS (1)
  - DEATH [None]
